FAERS Safety Report 10914367 (Version 2)
Quarter: 2015Q2

REPORT INFORMATION
  Report Type: Other
  Country: IT (occurrence: IT)
  Receive Date: 20150313
  Receipt Date: 20150601
  Transmission Date: 20150821
  Serious: Yes (Hospitalization)
  Sender: FDA-Public Use
  Company Number: IT-TAKEDA-2015MPI001191

PATIENT

DRUGS (2)
  1. VELCADE [Suspect]
     Active Substance: BORTEZOMIB
     Indication: PLASMA CELL LEUKAEMIA
     Dosage: 2.31 MG, UNK
     Route: 058
     Dates: start: 20141118, end: 20150210
  2. ALKERAN [Suspect]
     Active Substance: MELPHALAN
     Indication: PLASMA CELL LEUKAEMIA
     Route: 048
     Dates: start: 20141118, end: 20150213

REACTIONS (3)
  - Pneumonia [Recovering/Resolving]
  - Pyrexia [Recovering/Resolving]
  - Chest pain [Recovering/Resolving]

NARRATIVE: CASE EVENT DATE: 20150213
